FAERS Safety Report 8443713-7 (Version None)
Quarter: 2012Q2

REPORT INFORMATION
  Report Type: 
  Country: None (occurrence: None)
  Receive Date: 20120618
  Receipt Date: 20120606
  Transmission Date: 20120825
  Serious: Yes (Hospitalization)
  Sender: FDA-Public Use
  Company Number: FR-ELI_LILLY_AND_COMPANY-FR201206001548

PATIENT
  Age: 73 Year
  Sex: Female

DRUGS (5)
  1. LEXOMIL [Concomitant]
  2. BISOPROLOL FUMARATE [Concomitant]
     Dosage: 10 MG, QD
  3. OXAZEPAM [Concomitant]
  4. PROZAC [Suspect]
     Dosage: UNK, UNKNOWN
     Route: 048
     Dates: start: 20120501, end: 20120511
  5. ATACAND [Concomitant]
     Dosage: 8 MG, QD

REACTIONS (2)
  - HYPONATRAEMIA [None]
  - BLOOD PRESSURE INCREASED [None]
